FAERS Safety Report 5706280-4 (Version None)
Quarter: 2008Q2

REPORT INFORMATION
  Report Type: 
  Country: None (occurrence: None)
  Receive Date: 20080328
  Receipt Date: 20080328
  Transmission Date: 20081010
  Serious: Yes (Other)
  Sender: FDA-Public Use
  Company Number: HQWYE322723MAY07

PATIENT
  Age: 39 Year
  Sex: Male
  Weight: 72.64 kg

DRUGS (3)
  1. ALAVERT [Suspect]
     Indication: SINUSITIS
     Dosage: 1 TABLET 1X PER 1 DAY, ORAL
     Route: 048
     Dates: start: 20070522, end: 20070522
  2. AMOXICILLIN [Concomitant]
  3. ACETAMINOPHEN [Concomitant]

REACTIONS (2)
  - COUGH [None]
  - VOMITING [None]
